FAERS Safety Report 25427943 (Version 2)
Quarter: 2025Q2

REPORT INFORMATION
  Report Type: Spontaneous
  Country: PL (occurrence: PL)
  Receive Date: 20250612
  Receipt Date: 20250624
  Transmission Date: 20250716
  Serious: Yes (Other)
  Sender: BIOGEN
  Company Number: PL-002147023-NVSC2025PL084553

PATIENT
  Age: 44 Year
  Sex: Male

DRUGS (6)
  1. TECFIDERA [Suspect]
     Active Substance: DIMETHYL FUMARATE
     Indication: Product used for unknown indication
     Route: 050
     Dates: start: 201910, end: 202108
  2. FINGOLIMOD [Suspect]
     Active Substance: FINGOLIMOD
     Indication: Relapsing-remitting multiple sclerosis
     Route: 050
     Dates: start: 201202
  3. FINGOLIMOD [Suspect]
     Active Substance: FINGOLIMOD
     Route: 050
     Dates: start: 201404
  4. FINGOLIMOD [Suspect]
     Active Substance: FINGOLIMOD
     Route: 050
     Dates: start: 201407
  5. KESIMPTA [Suspect]
     Active Substance: OFATUMUMAB
     Indication: Product used for unknown indication
     Route: 050
     Dates: start: 20221201
  6. GLATIRAMER ACETATE [Concomitant]
     Active Substance: GLATIRAMER ACETATE
     Indication: Product used for unknown indication
     Route: 050
     Dates: start: 201205

REACTIONS (11)
  - Multiple sclerosis [Unknown]
  - Multiple sclerosis pseudo relapse [Unknown]
  - Multiple sclerosis relapse [Unknown]
  - Hypertonic bladder [Unknown]
  - Muscle strength abnormal [Unknown]
  - Paraparesis [Unknown]
  - Diplopia [Unknown]
  - Gastrointestinal disorder [Unknown]
  - Anal sphincter atony [Unknown]
  - Nasopharyngitis [Unknown]
  - Peroneal nerve palsy [Unknown]

NARRATIVE: CASE EVENT DATE: 20200101
